FAERS Safety Report 23488748 (Version 3)
Quarter: 2024Q1

REPORT INFORMATION
  Report Type: Spontaneous
  Country: US (occurrence: US)
  Receive Date: 20240206
  Receipt Date: 20240307
  Transmission Date: 20240410
  Serious: Yes (Other)
  Sender: FDA-Public Use
  Company Number: US-PFIZER INC-PV202400016837

PATIENT

DRUGS (1)
  1. PAXLOVID [Suspect]
     Active Substance: NIRMATRELVIR\RITONAVIR
     Indication: COVID-19 treatment
     Dosage: UNK, 2X/DAY
     Dates: start: 20240201

REACTIONS (4)
  - Swelling face [Unknown]
  - Mouth swelling [Unknown]
  - Dyspnoea [Unknown]
  - Lip swelling [Unknown]

NARRATIVE: CASE EVENT DATE: 20240201
